FAERS Safety Report 5330577-3 (Version None)
Quarter: 2007Q2

REPORT INFORMATION
  Report Type: 
  Country: None (occurrence: None)
  Receive Date: 20070516
  Receipt Date: 20070502
  Transmission Date: 20071010
  Serious: Yes (Hospitalization)
  Sender: FDA-Public Use
  Company Number: SPV1-2007-02630

PATIENT
  Age: 17 Year
  Sex: Male

DRUGS (2)
  1. PENTASA [Suspect]
     Indication: COLITIS ULCERATIVE
     Dosage: SEE IMAGE
     Route: 048
     Dates: start: 20070101, end: 20070101
  2. PENTASA [Suspect]
     Indication: COLITIS ULCERATIVE
     Dosage: SEE IMAGE
     Route: 048
     Dates: start: 20070401, end: 20070401

REACTIONS (3)
  - OBLITERATIVE BRONCHIOLITIS [None]
  - PANCREATITIS [None]
  - PULMONARY GRANULOMA [None]
